FAERS Safety Report 13401569 (Version 1)
Quarter: 2017Q2

REPORT INFORMATION
  Report Type: Spontaneous
  Country: GB (occurrence: GB)
  Receive Date: 20170404
  Receipt Date: 20170404
  Transmission Date: 20170830
  Serious: Yes (Congenital Anomaly)
  Sender: FDA-Public Use
  Company Number: GB-JNJFOC-20170333687

PATIENT

DRUGS (3)
  1. METHOTREXATE. [Suspect]
     Active Substance: METHOTREXATE
     Indication: JUVENILE IDIOPATHIC ARTHRITIS
     Dosage: 250 (UNIT UNSPECIFIED)
     Route: 064
     Dates: start: 2006, end: 200604
  2. NAPROXEN. [Concomitant]
     Active Substance: NAPROXEN
     Dosage: 500 (UNIT UNSPECIFIED)
     Route: 064
  3. INFLIXIMAB, RECOMBINANT [Suspect]
     Active Substance: INFLIXIMAB
     Indication: JUVENILE IDIOPATHIC ARTHRITIS
     Dosage: 250 (UNIT UNSPECIFIED)
     Route: 064
     Dates: start: 2006, end: 200604

REACTIONS (2)
  - Trisomy 21 [Not Recovered/Not Resolved]
  - Foetal exposure during pregnancy [Recovered/Resolved]
